FAERS Safety Report 4875896-X (Version None)
Quarter: 2006Q1

REPORT INFORMATION
  Report Type: 
  Country: None (occurrence: None)
  Receive Date: 20060109
  Receipt Date: 20051230
  Transmission Date: 20060701
  Serious: Yes (Other)
  Sender: FDA-Public Use
  Company Number: US-MERCK-0601USA00112

PATIENT
  Sex: Female

DRUGS (1)
  1. VIOXX [Suspect]
     Route: 048
     Dates: start: 19990601, end: 20040901

REACTIONS (4)
  - CEREBROVASCULAR ACCIDENT [None]
  - HEART INJURY [None]
  - PULMONARY HYPERTENSION [None]
  - TRANSIENT ISCHAEMIC ATTACK [None]
